FAERS Safety Report 13589271 (Version 2)
Quarter: 2017Q4

REPORT INFORMATION
  Report Type: Report from Study
  Country: US (occurrence: US)
  Receive Date: 20170529
  Receipt Date: 20171123
  Transmission Date: 20180320
  Serious: Yes (Hospitalization)
  Sender: FDA-Public Use
  Company Number: US-ROCHE-1939275

PATIENT
  Sex: Female

DRUGS (9)
  1. LENALIDOMIDE [Suspect]
     Active Substance: LENALIDOMIDE
     Indication: NON-HODGKIN^S LYMPHOMA UNSPECIFIED HISTOLOGY INDOLENT
     Dosage: STARTING DOSE OF 10 MG TAKEN ORALLY IN THE MORNING EACH DAY ON DAYS 2 - 22, FOLLOWED BY 6 DAYS OF NO
     Route: 048
  2. VALIUM [Concomitant]
     Active Substance: DIAZEPAM
     Dosage: 10 MG/2 ML SYRINGE
     Route: 042
     Dates: start: 20170520, end: 20170520
  3. OBINUTUZUMAB. [Suspect]
     Active Substance: OBINUTUZUMAB
     Indication: NON-HODGKIN^S LYMPHOMA UNSPECIFIED HISTOLOGY INDOLENT
     Dosage: ON DAY 1, 2, 8, AND 15 OF CYCLE ONE AND ON DAY 1 OF EACH SUBSEQUENT CYCLE UP TO 6 CYCLES. OBINUTUZUM
     Route: 042
  4. ACETAMINOPHEN. [Concomitant]
     Active Substance: ACETAMINOPHEN
     Route: 065
     Dates: start: 20170520
  5. ZOFRAN [Concomitant]
     Active Substance: ONDANSETRON HYDROCHLORIDE
     Route: 065
     Dates: start: 20170520, end: 20170818
  6. MEDROL [Concomitant]
     Active Substance: METHYLPREDNISOLONE
     Route: 048
  7. ANTIVERT [Concomitant]
     Active Substance: MECLIZINE HYDROCHLORIDE
     Route: 048
     Dates: start: 20170520, end: 20170819
  8. TIMOLOL MALEATE OPHTHALMIC SOLUTION [Concomitant]
     Active Substance: TIMOLOL MALEATE
     Dosage: 1 DROP EACH EYE BED TIME
     Route: 065
     Dates: start: 20170520
  9. SODIUM CHLORIDE. [Concomitant]
     Active Substance: SODIUM CHLORIDE
     Route: 065
     Dates: start: 20170520, end: 20170520

REACTIONS (1)
  - Vertigo [Unknown]

NARRATIVE: CASE EVENT DATE: 20170522
